FAERS Safety Report 10188186 (Version 1)
Quarter: 2014Q2

REPORT INFORMATION
  Report Type: Spontaneous
  Country: US (occurrence: None)
  Receive Date: 20140521
  Receipt Date: 20140521
  Transmission Date: 20141212
  Serious: Yes (Life-Threatening, Hospitalization, Disabling)
  Sender: FDA-Public Use
  Company Number: None

PATIENT
  Age: 30 Year
  Sex: Female
  Weight: 131.54 kg

DRUGS (1)
  1. ORTHO TRI CYCLEN LO JANSSEN [Suspect]
     Indication: MENSTRUATION IRREGULAR
     Route: 048
     Dates: start: 20050501, end: 20140506

REACTIONS (2)
  - Thrombosis [None]
  - Coronary artery occlusion [None]
